FAERS Safety Report 20135364 (Version 1)
Quarter: 2021Q4

REPORT INFORMATION
  Report Type: Spontaneous
  Country: US (occurrence: US)
  Receive Date: 20211201
  Receipt Date: 20211201
  Transmission Date: 20220303
  Serious: Yes (Other)
  Sender: FDA-Public Use
  Company Number: US-NOVARTISPH-NVSC2021US263333

PATIENT
  Age: 75 Year
  Sex: Male
  Weight: 83.7 kg

DRUGS (2)
  1. ZOFRAN [Suspect]
     Active Substance: ONDANSETRON HYDROCHLORIDE
     Indication: Nausea
     Dosage: UNK UNK, Q8H (1 TAB BY MOUTH 30 TAB)
     Route: 048
     Dates: start: 20210916
  2. ZOFRAN [Suspect]
     Active Substance: ONDANSETRON HYDROCHLORIDE
     Indication: Vomiting

REACTIONS (24)
  - Thrombocytopenia [Unknown]
  - Platelet count decreased [Unknown]
  - Keratopathy [Unknown]
  - Visual acuity reduced [Unknown]
  - Blood albumin decreased [Unknown]
  - Blood creatinine decreased [Unknown]
  - Blood glucose decreased [Unknown]
  - Blood potassium decreased [Unknown]
  - Blood urea increased [Unknown]
  - Haematocrit decreased [Unknown]
  - Haemoglobin decreased [Unknown]
  - Mean cell volume increased [Unknown]
  - Red blood cell count decreased [Unknown]
  - White blood cell count decreased [Unknown]
  - Albumin globulin ratio decreased [Unknown]
  - Alpha 1 globulin increased [Unknown]
  - Blood immunoglobulin A decreased [Unknown]
  - Blood immunoglobulin G increased [Unknown]
  - Blood immunoglobulin M decreased [Unknown]
  - Immunoglobulins increased [Unknown]
  - Light chain analysis decreased [Unknown]
  - Light chain analysis abnormal [Unknown]
  - Light chain analysis increased [Unknown]
  - Monoclonal immunoglobulin increased [Unknown]

NARRATIVE: CASE EVENT DATE: 20211018
